FAERS Safety Report 14653694 (Version 1)
Quarter: 2018Q1

REPORT INFORMATION
  Report Type: Spontaneous
  Country: US (occurrence: US)
  Receive Date: 20180319
  Receipt Date: 20180319
  Transmission Date: 20180509
  Serious: No
  Sender: FDA-Public Use
  Company Number: US-PFIZER INC-2018110061

PATIENT
  Age: 65 Year
  Sex: Female
  Weight: 79.38 kg

DRUGS (2)
  1. GENOTROPIN MQ [Suspect]
     Active Substance: SOMATROPIN
     Dosage: 0.4 MG, UNK
     Dates: end: 2017
  2. GENOTROPIN MQ [Suspect]
     Active Substance: SOMATROPIN
     Indication: INSULIN-LIKE GROWTH FACTOR DECREASED
     Dosage: 0.6 MG, DAILY
     Dates: start: 2010

REACTIONS (2)
  - Drug ineffective [Unknown]
  - Sleep disorder [Not Recovered/Not Resolved]
